FAERS Safety Report 12235626 (Version 4)
Quarter: 2022Q3

REPORT INFORMATION
  Report Type: Spontaneous
  Country: US (occurrence: US)
  Receive Date: 20160404
  Receipt Date: 20220929
  Transmission Date: 20221027
  Serious: No
  Sender: FDA-Public Use
  Company Number: US-BRISTOL-MYERS SQUIBB COMPANY-BMS-2016-024534

PATIENT
  Age: 75 Year
  Sex: Female
  Weight: 61.69 kg

DRUGS (3)
  1. PRAVASTATIN SODIUM [Suspect]
     Active Substance: PRAVASTATIN SODIUM
     Indication: Product used for unknown indication
     Route: 065
  2. DETROL [Suspect]
     Active Substance: TOLTERODINE TARTRATE
     Indication: Product used for unknown indication
     Dosage: 2 MG, UNK
     Route: 065
  3. DETROL [Suspect]
     Active Substance: TOLTERODINE TARTRATE
     Route: 065
     Dates: start: 2013

REACTIONS (8)
  - Peripheral swelling [Recovering/Resolving]
  - Gait disturbance [Unknown]
  - Flushing [Unknown]
  - Fatigue [Unknown]
  - Bone pain [Recovering/Resolving]
  - Arthropathy [Recovering/Resolving]
  - Myalgia [Unknown]
  - Pain in extremity [Unknown]
